FAERS Safety Report 6745754-4 (Version None)
Quarter: 2010Q2

REPORT INFORMATION
  Report Type: 
  Country: None (occurrence: None)
  Receive Date: 20100528
  Receipt Date: 20100519
  Transmission Date: 20101027
  Serious: Yes (Hospitalization, Other)
  Sender: FDA-Public Use
  Company Number: US-JNJFOC-20100308667

PATIENT
  Age: 8 Decade
  Sex: Male

DRUGS (2)
  1. NUCYNTA [Suspect]
     Indication: ARTHRALGIA
     Dosage: 1 EVERY 8 HOURS AS NEEDED
     Route: 048
  2. VICODIN [Concomitant]
     Indication: PAIN
     Dosage: AS NEEDED
     Route: 048

REACTIONS (5)
  - CONFUSIONAL STATE [None]
  - DEHYDRATION [None]
  - FALL [None]
  - FEELING ABNORMAL [None]
  - RENAL IMPAIRMENT [None]
